FAERS Safety Report 21301110 (Version 3)
Quarter: 2022Q3

REPORT INFORMATION
  Report Type: Spontaneous
  Country: JP (occurrence: JP)
  Receive Date: 20220907
  Receipt Date: 20220918
  Transmission Date: 20221026
  Serious: Yes (Other)
  Sender: FDA-Public Use
  Company Number: JP-PFIZER INC-PV202200052294

PATIENT
  Sex: Female

DRUGS (1)
  1. ENBREL [Suspect]
     Active Substance: ETANERCEPT
     Indication: Rheumatoid arthritis
     Dosage: ON FRIDAY
     Route: 058

REACTIONS (7)
  - Spinal operation [Unknown]
  - Device use issue [Unknown]
  - Feeding disorder [Unknown]
  - Procedural pain [Unknown]
  - Marasmus [Unknown]
  - Weight decreased [Unknown]
  - Injection site pain [Unknown]
